FAERS Safety Report 5293070-2 (Version None)
Quarter: 2007Q2

REPORT INFORMATION
  Report Type: 
  Country: None (occurrence: None)
  Receive Date: 20070411
  Receipt Date: 20070405
  Transmission Date: 20071010
  Serious: Yes (Death)
  Sender: FDA-Public Use
  Company Number: PHEH2007US03627

PATIENT
  Age: 41 Year
  Sex: Male

DRUGS (2)
  1. CLOZARIL [Suspect]
     Indication: SCHIZOPHRENIA
     Dates: end: 20070118
  2. DEPAKOTE [Concomitant]

REACTIONS (3)
  - HAEMORRHAGE [None]
  - RIB FRACTURE [None]
  - ROAD TRAFFIC ACCIDENT [None]
